FAERS Safety Report 8818911 (Version 4)
Quarter: 2013Q1

REPORT INFORMATION
  Report Type: Spontaneous
  Country: GB (occurrence: GB)
  Receive Date: 20121001
  Receipt Date: 20130102
  Transmission Date: 20140127
  Serious: Yes (Death, Hospitalization, Other)
  Sender: FDA-Public Use
  Company Number: PHFR2012GB003099

PATIENT
  Age: 42 None
  Sex: Male

DRUGS (3)
  1. CLOZARIL [Suspect]
     Indication: SCHIZOPHRENIA
     Dosage: 300 MG, UNK
     Route: 048
     Dates: start: 20010701
  2. VALPROATE SODIUM [Suspect]
     Indication: CONVULSION
     Dosage: 1000 MG, UNK
     Route: 048
  3. SORAFENIB [Concomitant]
     Dosage: UNK UKN, UNK
     Route: 048

REACTIONS (7)
  - Renal cell carcinoma [Fatal]
  - Metastases to lung [Fatal]
  - Metastases to kidney [Fatal]
  - Metastases to central nervous system [Fatal]
  - Anaemia [Not Recovered/Not Resolved]
  - Haemoglobin decreased [Not Recovered/Not Resolved]
  - Red blood cell count increased [Unknown]
